FAERS Safety Report 5462944-1 (Version None)
Quarter: 2007Q3

REPORT INFORMATION
  Report Type: 
  Country: None (occurrence: None)
  Receive Date: 20070920
  Receipt Date: 20070919
  Transmission Date: 20080115
  Serious: Yes (Hospitalization)
  Sender: FDA-Public Use
  Company Number: US-BRISTOL-MYERS SQUIBB COMPANY-13912951

PATIENT
  Age: 71 Year
  Sex: Female
  Weight: 70 kg

DRUGS (3)
  1. AVAPRO [Suspect]
     Indication: HYPERTENSION
     Route: 048
     Dates: start: 20070301
  2. LOPRESSOR [Concomitant]
  3. COUMADIN [Concomitant]

REACTIONS (3)
  - DIARRHOEA [None]
  - KIDNEY INFECTION [None]
  - PNEUMONIA [None]
